FAERS Safety Report 8881199 (Version 2)
Quarter: 2012Q4

REPORT INFORMATION
  Report Type: 
  Country: FR (occurrence: FR)
  Receive Date: 20121031
  Receipt Date: 20121123
  Transmission Date: 20130627
  Serious: Yes (Other)
  Sender: FDA-Public Use
  Company Number: PHHY2012FR082506

PATIENT
  Sex: Female
  Weight: 120 kg

DRUGS (8)
  1. RASILEZ [Suspect]
     Indication: HYPERTENSION
     Dosage: 300 mg, QD
     Dates: start: 2010, end: 201206
  2. APROVEL [Suspect]
     Dosage: 300 mg, QD
     Dates: end: 201206
  3. AMIODARONE [Concomitant]
  4. PREVISCAN [Concomitant]
  5. FENOFIBRATE [Concomitant]
  6. BISOPROLOL [Concomitant]
  7. FLUDEX [Concomitant]
  8. FUROSEMIDE [Concomitant]

REACTIONS (5)
  - Diabetes mellitus [Recovered/Resolved]
  - Blood urea decreased [Recovered/Resolved]
  - Renal failure [Recovering/Resolving]
  - Blood creatinine increased [Recovered/Resolved]
  - Hypotension [Recovered/Resolved]
